FAERS Safety Report 9282395 (Version 1)
Quarter: 2013Q2

REPORT INFORMATION
  Report Type: Spontaneous
  Country: US (occurrence: None)
  Receive Date: 20130506
  Receipt Date: 20130506
  Transmission Date: 20140414
  Serious: Yes (Hospitalization, Other)
  Sender: FDA-Public Use
  Company Number: 2013P1005171

PATIENT
  Age: 50 Year
  Sex: Female

DRUGS (13)
  1. LORAZEPAM [Suspect]
     Indication: POST-TRAUMATIC STRESS DISORDER
  2. CITALOPRAM [Suspect]
     Indication: POST-TRAUMATIC STRESS DISORDER
  3. SERTRALINE [Suspect]
     Indication: POST-TRAUMATIC STRESS DISORDER
  4. BUPROPION [Suspect]
     Indication: POST-TRAUMATIC STRESS DISORDER
  5. PAROXETINE [Suspect]
     Indication: POST-TRAUMATIC STRESS DISORDER
     Dosage: X 2DOSES
  6. PREGABALIN [Suspect]
     Indication: POST-TRAUMATIC STRESS DISORDER
  7. MIRTAZAPINE [Suspect]
     Indication: POST-TRAUMATIC STRESS DISORDER
  8. HORMONES [Suspect]
     Indication: POST-TRAUMATIC STRESS DISORDER
  9. UNSPECIFIED INGREDIENT [Concomitant]
  10. UNSPECIFIED HOMEOPATHY TREATMENT [Concomitant]
  11. UNSPECIFIED CHINESE HERBS [Concomitant]
  12. GEMMO [Concomitant]
  13. TARGETED AMINO ACID THERAPY [Concomitant]

REACTIONS (16)
  - Night sweats [None]
  - Somnolence [None]
  - Constipation [None]
  - Weight increased [None]
  - Loss of libido [None]
  - Depression [None]
  - Suicidal ideation [None]
  - Anxiety [None]
  - Weight decreased [None]
  - Agitation [None]
  - Insomnia [None]
  - Tachycardia [None]
  - Homicidal ideation [None]
  - Self esteem decreased [None]
  - Movement disorder [None]
  - Drug withdrawal syndrome [None]
